FAERS Safety Report 21842341 (Version 1)
Quarter: 2023Q1

REPORT INFORMATION
  Report Type: Spontaneous
  Country: US (occurrence: None)
  Receive Date: 20230109
  Receipt Date: 20230109
  Transmission Date: 20230418
  Serious: Yes (Hospitalization)
  Sender: FDA-Public Use
  Company Number: None

PATIENT
  Age: 54 Year
  Sex: Female

DRUGS (19)
  1. OPSUMIT [Suspect]
     Active Substance: MACITENTAN
     Indication: Pulmonary arterial hypertension
     Dosage: FREQUENCY : DAILY;?
     Route: 048
     Dates: start: 20170113
  2. amtriptyline [Concomitant]
  3. LORAZEPAM [Concomitant]
     Active Substance: LORAZEPAM
  4. OMEPRAZOLE [Concomitant]
     Active Substance: OMEPRAZOLE
  5. symbicort HFA [Concomitant]
  6. LEVOTHYROXINE [Concomitant]
     Active Substance: LEVOTHYROXINE
  7. MONTELUKAST [Concomitant]
     Active Substance: MONTELUKAST SODIUM
  8. VELPHORO [Concomitant]
     Active Substance: SUCROFERRIC OXYHYDROXIDE
  9. HYOSCYAMINE [Concomitant]
     Active Substance: HYOSCYAMINE
  10. ketotifen opht drop [Concomitant]
  11. MIDODRINE [Concomitant]
     Active Substance: MIDODRINE
  12. ALBUTEROL [Concomitant]
     Active Substance: ALBUTEROL
  13. RENVELA [Concomitant]
     Active Substance: SEVELAMER CARBONATE
  14. ATENOLOL [Concomitant]
  15. ASPIRIN [Concomitant]
     Active Substance: ASPIRIN
  16. CINACALCET [Concomitant]
     Active Substance: CINACALCET
  17. ASTELIN [Concomitant]
     Active Substance: AZELASTINE HYDROCHLORIDE
  18. ALBUTEROL SULFATE [Concomitant]
     Active Substance: ALBUTEROL SULFATE
  19. NEPHRO VITE RX [Concomitant]
     Active Substance: ASCORBIC ACID\BIOTIN\CALCIUM PANTOTHENATE\CYANOCOBALAMIN\FOLIC ACID\NIACINAMIDE\PYRIDOXINE HYDROCHLO

REACTIONS (6)
  - Dyspnoea [None]
  - SARS-CoV-2 test positive [None]
  - Pyrexia [None]
  - Cough [None]
  - Fatigue [None]
  - Dyspnoea exertional [None]

NARRATIVE: CASE EVENT DATE: 20221208
